FAERS Safety Report 8349607-X (Version None)
Quarter: 2012Q2

REPORT INFORMATION
  Report Type: 
  Country: None (occurrence: None)
  Receive Date: 20120510
  Receipt Date: 20120502
  Transmission Date: 20120825
  Serious: Yes (Hospitalization, Other)
  Sender: FDA-Public Use
  Company Number: US-BAYER-2011-112126

PATIENT
  Age: 30 Year
  Sex: Female

DRUGS (47)
  1. SEASONIQUE [Concomitant]
  2. PHENERGAN [Concomitant]
     Route: 054
  3. ZOFRAN [Concomitant]
  4. NORVASC [Concomitant]
  5. HYDROCHLOROTHIAZIDE [Concomitant]
  6. AVALIDE [Concomitant]
  7. ASPIRIN [Concomitant]
  8. REGLAN [Concomitant]
  9. LISINOPRIL [Concomitant]
     Dosage: UNK
     Dates: end: 20080122
  10. METOPROLOL TARTRATE [Concomitant]
  11. HUMALOG [Concomitant]
     Indication: DIABETES MELLITUS
  12. ASPIRIN [Concomitant]
  13. NEXIUM [Concomitant]
  14. VITAMIN TAB [Concomitant]
     Dosage: UNK
     Dates: start: 20080120
  15. BENICAR [Concomitant]
  16. WARFARIN SODIUM [Concomitant]
  17. ONDANSETRON HCL [Concomitant]
  18. TORSEMIDE [Concomitant]
  19. SODIUM CARBONATE [Concomitant]
  20. CADUET [Concomitant]
  21. SEASONALE [Concomitant]
  22. FERROUS SULFATE TAB [Concomitant]
  23. METOCLOPRAMIDE [Concomitant]
  24. LASIX [Concomitant]
  25. MAGNESIUM OXIDE [Concomitant]
  26. OMEPRAZOLE [Concomitant]
  27. ATROPINE [Concomitant]
     Dosage: UNK
     Dates: start: 20080118
  28. TYLENOL (CAPLET) [Concomitant]
     Dosage: 500 MG, 1 - 2 TABLETS Q 6 PRN
     Route: 048
     Dates: start: 20080118
  29. CLONIDINE [Concomitant]
  30. PROCRIT [Concomitant]
  31. YAZ [Suspect]
     Indication: PREMENSTRUAL SYNDROME
     Dosage: UNK
     Dates: start: 20050101, end: 20060101
  32. MORPHINE [Concomitant]
  33. AMLODIPINE [Concomitant]
  34. FUROSEMIDE [Concomitant]
  35. LOPRESSOR [Concomitant]
  36. ARANESP [Concomitant]
  37. COLECALCIFEROL [Concomitant]
  38. LANTUS [Concomitant]
     Indication: DIABETES MELLITUS
  39. ZEMPLAR [Concomitant]
  40. PROTONIX [Concomitant]
     Dosage: 40 MG, BID
     Route: 042
     Dates: start: 20041109, end: 20080120
  41. ACETAMINOPHEN [Concomitant]
  42. ZOSYN [Concomitant]
  43. QUASENSE [Concomitant]
  44. PERIACTIN [Concomitant]
  45. MACROBID [Concomitant]
  46. DEMADEX [Concomitant]
  47. NORCO [Concomitant]

REACTIONS (11)
  - CHOLECYSTITIS [None]
  - INJURY [None]
  - GENERAL PHYSICAL HEALTH DETERIORATION [None]
  - RENAL FAILURE [None]
  - ANXIETY [None]
  - GALLBLADDER INJURY [None]
  - ARTERIAL THROMBOSIS LIMB [None]
  - PAIN [None]
  - EMOTIONAL DISTRESS [None]
  - THROMBOSIS [None]
  - ANHEDONIA [None]
